FAERS Safety Report 5237282-2 (Version None)
Quarter: 2007Q1

REPORT INFORMATION
  Report Type: 
  Country: None (occurrence: None)
  Receive Date: 20070213
  Receipt Date: 20070202
  Transmission Date: 20070707
  Serious: Yes (Death)
  Sender: FDA-Public Use
  Company Number: CH-GILEAD-2007-0011177

PATIENT
  Age: 44 Year
  Sex: Female
  Weight: 70 kg

DRUGS (5)
  1. VIREAD [Suspect]
     Indication: HIV INFECTION
     Route: 048
     Dates: start: 20030101, end: 20061214
  2. VIDEX [Suspect]
     Indication: HIV INFECTION
     Route: 048
     Dates: start: 20030101, end: 20061214
  3. CRIXIVAN [Suspect]
     Indication: HIV INFECTION
     Route: 048
     Dates: start: 20030101, end: 20061214
  4. KALETRA [Concomitant]
     Indication: HIV INFECTION
     Route: 048
     Dates: start: 20030101, end: 20061214
  5. METHADONE HCL [Concomitant]
     Route: 048
     Dates: end: 20061214

REACTIONS (2)
  - LACTIC ACIDOSIS [None]
  - RENAL FAILURE ACUTE [None]
